FAERS Safety Report 14861284 (Version 1)
Quarter: 2018Q2

REPORT INFORMATION
  Report Type: Report from Study
  Country: None (occurrence: DE)
  Receive Date: 20180508
  Receipt Date: 20180508
  Transmission Date: 20180711
  Serious: Yes (Death, Hospitalization)
  Sender: FDA-Public Use
  Company Number: DE-ABBVIE-18K-062-2347364-00

PATIENT
  Sex: Male

DRUGS (1)
  1. DUODOPA [Suspect]
     Active Substance: CARBIDOPA\LEVODOPA
     Indication: PARKINSON^S DISEASE
     Dosage: MD 3 ML; CRD 2.8 ML/HR; ED 0 ML?STOP DATE TEXT: UNTIL DEATH
     Route: 050
     Dates: start: 20101104

REACTIONS (2)
  - Pneumonia [Fatal]
  - Electrolyte imbalance [Fatal]
